FAERS Safety Report 15886595 (Version 1)
Quarter: 2019Q1

REPORT INFORMATION
  Report Type: Spontaneous
  Country: US (occurrence: US)
  Receive Date: 20190129
  Receipt Date: 20190129
  Transmission Date: 20190417
  Serious: No
  Sender: FDA-Public Use
  Company Number: US-ASTRAZENECA-2019SE13060

PATIENT
  Age: 27547 Day
  Sex: Male
  Weight: 97.5 kg

DRUGS (2)
  1. BRILINTA [Suspect]
     Active Substance: TICAGRELOR
     Indication: CORONARY ARTERY STENOSIS
     Route: 048
     Dates: start: 20190117
  2. BRILINTA [Suspect]
     Active Substance: TICAGRELOR
     Indication: CORONARY ARTERY STENOSIS
     Route: 048
     Dates: start: 20180804, end: 20190116

REACTIONS (3)
  - Panic reaction [Unknown]
  - Incorrect product administration duration [Not Recovered/Not Resolved]
  - Product dose omission [Recovered/Resolved]

NARRATIVE: CASE EVENT DATE: 20190116
